FAERS Safety Report 6725262-7 (Version None)
Quarter: 2010Q2

REPORT INFORMATION
  Report Type: 
  Country: None (occurrence: None)
  Receive Date: 20100514
  Receipt Date: 20100504
  Transmission Date: 20101027
  Serious: Yes (Death)
  Sender: FDA-Public Use
  Company Number: US-SANOFI-AVENTIS-2010SA026444

PATIENT
  Age: 64 Year
  Sex: Male

DRUGS (44)
  1. LOVENOX [Suspect]
     Route: 065
  2. HEPARIN [Suspect]
     Indication: THROMBOSIS PROPHYLAXIS
     Dosage: DOSE:3000 UNIT(S)
     Route: 065
     Dates: start: 20080130, end: 20080220
  3. HEPARIN [Suspect]
     Dosage: DOSE:3000 UNIT(S)
     Route: 065
     Dates: start: 20080130, end: 20080220
  4. HEPARIN [Suspect]
     Dosage: DOSE:5000 UNIT(S)
     Route: 058
     Dates: start: 20080201, end: 20080201
  5. HEPARIN [Suspect]
     Dosage: DOSE:5000 UNIT(S)
     Route: 058
     Dates: start: 20080201, end: 20080201
  6. HEPARIN [Suspect]
     Dosage: DOSE:5000 UNIT(S)
     Route: 058
     Dates: start: 20080219, end: 20080225
  7. HEPARIN [Suspect]
     Dosage: DOSE:5000 UNIT(S)
     Route: 058
     Dates: start: 20080219, end: 20080225
  8. HEPARIN [Suspect]
     Dosage: DOSE:4000 UNIT(S)
     Route: 065
     Dates: start: 20080220
  9. HEPARIN [Suspect]
     Dosage: DOSE:4000 UNIT(S)
     Route: 065
     Dates: start: 20080220
  10. HEPARIN [Suspect]
     Dosage: DOSE:3000 UNIT(S)
     Route: 065
     Dates: start: 20080225, end: 20080225
  11. HEPARIN [Suspect]
     Dosage: DOSE:3000 UNIT(S)
     Route: 065
     Dates: start: 20080225, end: 20080225
  12. HEPARIN [Suspect]
     Dosage: DOSE:5000 UNIT(S)
     Route: 058
     Dates: start: 20080226, end: 20080325
  13. HEPARIN [Suspect]
     Dosage: DOSE:5000 UNIT(S)
     Route: 058
     Dates: start: 20080226, end: 20080325
  14. HEPARIN [Suspect]
     Dosage: DOSE:1000 UNIT(S)
     Route: 058
     Dates: start: 20080226, end: 20080325
  15. HEPARIN [Suspect]
     Dosage: DOSE:1000 UNIT(S)
     Route: 058
     Dates: start: 20080226, end: 20080325
  16. HEPARIN [Suspect]
     Dosage: DOSE:2000 UNIT(S)
     Route: 065
     Dates: start: 20080125, end: 20080130
  17. HEPARIN [Suspect]
     Dosage: DOSE:2000 UNIT(S)
     Route: 065
     Dates: start: 20080125, end: 20080130
  18. LEVOTHYROXINE SODIUM [Concomitant]
  19. OXYCODONE [Concomitant]
  20. ALLOPURINOL [Concomitant]
  21. ATENOLOL [Concomitant]
  22. GLIPIZIDE [Concomitant]
  23. INDOMETHACIN [Concomitant]
  24. LANTUS [Concomitant]
  25. GABAPENTIN [Concomitant]
  26. METOCLOPRAMIDE HYDROCHLORIDE [Concomitant]
  27. OMEPRAZOLE [Concomitant]
  28. SIMVASTATIN [Concomitant]
  29. METHADONE [Concomitant]
  30. NOVOLOG [Concomitant]
  31. BUPROPION HCL [Concomitant]
  32. SENNA [Concomitant]
  33. FUROSEMIDE [Concomitant]
  34. ACTOS [Concomitant]
  35. NITROGLYCERIN ^PHARMACIA + UPJOHN^ [Concomitant]
  36. MECLIZINE [Concomitant]
  37. TYLENOL-500 [Concomitant]
  38. ASPIRIN [Concomitant]
  39. GAS RELIEF [Concomitant]
  40. ALBUTEROL [Concomitant]
  41. IPRATROPIUM [Concomitant]
  42. LEVITRA [Concomitant]
  43. VENOFER [Concomitant]
  44. EPOGEN [Concomitant]

REACTIONS (2)
  - MULTI-ORGAN FAILURE [None]
  - PNEUMONIA STAPHYLOCOCCAL [None]
